FAERS Safety Report 6836788-X (Version None)
Quarter: 2010Q3

REPORT INFORMATION
  Report Type: 
  Country: None (occurrence: None)
  Receive Date: 20100708
  Receipt Date: 20100623
  Transmission Date: 20110219
  Serious: Yes (Hospitalization, Other)
  Sender: FDA-Public Use
  Company Number: 015353/AE 2010-128

PATIENT
  Age: 49 Year
  Sex: Female

DRUGS (8)
  1. PRIALT [Suspect]
     Indication: BACK PAIN
     Dosage: 0.006-0.17 UG/HR
     Dates: start: 20091209, end: 20100427
  2. PRIALT [Suspect]
     Indication: PAIN IN EXTREMITY
     Dosage: 0.006-0.17 UG/HR
     Dates: start: 20091209, end: 20100427
  3. LYRICA [Concomitant]
  4. PROVIGIL [Concomitant]
  5. CELLCEPT [Concomitant]
  6. COPAXONE [Concomitant]
  7. WELLLBUTRIN [Concomitant]
  8. PROZAC [Concomitant]

REACTIONS (27)
  - AGITATION [None]
  - BACK PAIN [None]
  - CARDIAC STRESS TEST ABNORMAL [None]
  - CHEST PAIN [None]
  - CONFUSIONAL STATE [None]
  - DYSMORPHISM [None]
  - ELECTROCARDIOGRAM ABNORMAL [None]
  - GRANULOMA [None]
  - HALLUCINATION, AUDITORY [None]
  - HEADACHE [None]
  - HYPOAESTHESIA [None]
  - HYPOTENSION [None]
  - MUSCLE SPASMS [None]
  - MUSCULAR WEAKNESS [None]
  - MUSCULOSKELETAL STIFFNESS [None]
  - NAUSEA [None]
  - ORAL DISORDER [None]
  - PAIN IN EXTREMITY [None]
  - PANIC ATTACK [None]
  - PRESYNCOPE [None]
  - PROCEDURAL PAIN [None]
  - PRURITUS [None]
  - PSYCHOTIC DISORDER [None]
  - SPINAL DISORDER [None]
  - SWELLING FACE [None]
  - THROAT TIGHTNESS [None]
  - URTICARIA [None]
